FAERS Safety Report 13581940 (Version 1)
Quarter: 2017Q2

REPORT INFORMATION
  Report Type: Spontaneous
  Country: US (occurrence: US)
  Receive Date: 20170525
  Receipt Date: 20170525
  Transmission Date: 20170830
  Serious: Yes (Other)
  Sender: FDA-Public Use
  Company Number: US-PFIZER INC-2017225248

PATIENT

DRUGS (1)
  1. GLIPIZIDE. [Suspect]
     Active Substance: GLIPIZIDE
     Dosage: UNK

REACTIONS (5)
  - Poisoning [Unknown]
  - Skin fissures [Unknown]
  - Skin burning sensation [Unknown]
  - Condition aggravated [Unknown]
  - Diabetes mellitus [Unknown]
